FAERS Safety Report 9396893 (Version 1)
Quarter: 2013Q3

REPORT INFORMATION
  Report Type: Spontaneous
  Country: US (occurrence: None)
  Receive Date: 20130710
  Receipt Date: 20130710
  Transmission Date: 20140515
  Serious: Yes (Hospitalization)
  Sender: FDA-Public Use
  Company Number: None

PATIENT
  Age: 77 Year
  Sex: Male
  Weight: 79.9 kg

DRUGS (2)
  1. BORTEZOMIB [Suspect]
     Indication: DIFFUSE LARGE B-CELL LYMPHOMA RECURRENT
     Dosage: 2.6 MG D1, 8, 15, 22 IV
     Route: 042
     Dates: start: 20130312, end: 20130626
  2. TEMSIROLIMUS [Suspect]
     Dosage: 20 MG D1, 8, 15, 22 IV
     Route: 042
     Dates: start: 20130312, end: 20130626

REACTIONS (5)
  - Chills [None]
  - Pyrexia [None]
  - Renal failure acute [None]
  - Hydronephrosis [None]
  - Pneumonia [None]
